FAERS Safety Report 8074257-2 (Version None)
Quarter: 2011Q4

REPORT INFORMATION
  Report Type: 
  Country: None (occurrence: None)
  Receive Date: 20111221
  Receipt Date: 20110407
  Transmission Date: 20120403
  Serious: Yes (Hospitalization)
  Sender: FDA-Public Use
  Company Number: PHHY201US29512

PATIENT
  Age: 44 Year
  Sex: Male

DRUGS (6)
  1. FOLIC ACID [Concomitant]
  2. HYDREA (HYROXYCARBAMIDE) [Concomitant]
  3. DLAUDID (HYDROMORPHONE HYDROCHLORIDE) [Concomitant]
  4. LACTULOSE [Concomitant]
  5. METHADONE HCL [Concomitant]
  6. DEFERASIROX [Suspect]
     Indication: SICKLE CELL ANAEMIA
     Dosage: 2500 MG, QD, ORAL
     Route: 048

REACTIONS (6)
  - SICKLE CELL ANAEMIA WITH CRISIS [None]
  - BACK PAIN [None]
  - PAIN [None]
  - BLOOD LACTATE DEHYDROGENASE INCREASED [None]
  - BREATH SOUNDS ABNORMAL [None]
  - BLOOD BILIRUBIN INCREASED [None]
